FAERS Safety Report 15329764 (Version 1)
Quarter: 2018Q3

REPORT INFORMATION
  Report Type: Spontaneous
  Country: US (occurrence: US)
  Receive Date: 20180829
  Receipt Date: 20180829
  Transmission Date: 20181010
  Serious: No
  Sender: FDA-Public Use
  Company Number: US-PHARMING-PHAUS2018000555

PATIENT

DRUGS (1)
  1. RUCONEST [Suspect]
     Active Substance: HUMAN C1-ESTERASE INHIBITOR
     Indication: HEREDITARY ANGIOEDEMA
     Dosage: UNK, EVERY 3 DAYS
     Route: 042
     Dates: start: 201802

REACTIONS (8)
  - Vascular access complication [Unknown]
  - Drug ineffective for unapproved indication [Recovered/Resolved]
  - Therapeutic response unexpected [Unknown]
  - Back injury [Unknown]
  - Headache [Recovered/Resolved]
  - Malaise [Recovered/Resolved]
  - Nasopharyngitis [Recovered/Resolved]
  - Urticaria [Recovered/Resolved]

NARRATIVE: CASE EVENT DATE: 2018
